FAERS Safety Report 12144287 (Version 1)
Quarter: 2016Q1

REPORT INFORMATION
  Report Type: Spontaneous
  Country: US (occurrence: None)
  Receive Date: 20160303
  Receipt Date: 20160303
  Transmission Date: 20160526
  Serious: No
  Sender: FDA-Public Use
  Company Number: None

PATIENT
  Age: 54 Year
  Sex: Female
  Weight: 115.21 kg

DRUGS (12)
  1. XARELTO [Suspect]
     Active Substance: RIVAROXABAN
     Indication: THROMBOSIS PROPHYLAXIS
     Dosage: 1 TABLET, ONCE DAILY, TAKEN BY MOUTH
     Dates: start: 20151029, end: 20160204
  2. MAGNESIUM [Concomitant]
     Active Substance: MAGNESIUM
  3. KRILL [Concomitant]
  4. KLON-CON [Concomitant]
  5. VITAMIN D3 [Concomitant]
     Active Substance: CHOLECALCIFEROL
  6. CALCIUM [Concomitant]
     Active Substance: CALCIUM
  7. LASIX [Concomitant]
     Active Substance: FUROSEMIDE
  8. OMEPRAZOLE. [Concomitant]
     Active Substance: OMEPRAZOLE
  9. VITAMIN B12 [Concomitant]
     Active Substance: CYANOCOBALAMIN
  10. PROBIOTIC [Concomitant]
     Active Substance: PROBIOTICS NOS
  11. FISH OIL [Concomitant]
     Active Substance: FISH OIL
  12. ALIVE [Concomitant]

REACTIONS (5)
  - Pruritus [None]
  - Pain in extremity [None]
  - Burning sensation [None]
  - Alopecia [None]
  - Haematochezia [None]

NARRATIVE: CASE EVENT DATE: 20151221
